FAERS Safety Report 6721887-3 (Version None)
Quarter: 2010Q2

REPORT INFORMATION
  Report Type: 
  Country: None (occurrence: None)
  Receive Date: 20100512
  Receipt Date: 20100430
  Transmission Date: 20101027
  Serious: Yes (Hospitalization, Other)
  Sender: FDA-Public Use
  Company Number: PHHY2010US28578

PATIENT
  Sex: Female
  Weight: 76 kg

DRUGS (19)
  1. EXJADE [Suspect]
     Indication: ACUTE MYELOID LEUKAEMIA
     Dosage: 1250 MG, QD
     Route: 048
     Dates: start: 20100201
  2. ACYCLOVIR [Concomitant]
     Dosage: 265 MG EVERY 24 HOURS
     Route: 042
  3. ALBUMIN (HUMAN) [Concomitant]
     Dosage: 25 MG/DAY
     Route: 042
  4. ALBUTEROL [Concomitant]
     Dosage: 2.5 MG EVERY 4 HOURS, PRN
  5. BENEFIBER [Concomitant]
     Dosage: 1 PACK DAILY, PRN
  6. BIOTENE [Concomitant]
     Dosage: 5 TO 10 CC ORALLY EVERY 4 HOURS
  7. CYCLOSPORINE [Concomitant]
     Dosage: 180 MG/DAY
     Route: 042
  8. ERTAPENEM [Concomitant]
     Dosage: 1 G EVERY 24 HOURS
     Route: 042
  9. FENTANYL [Concomitant]
     Dosage: 50 MCG EVERY 72 HOURS
  10. NEUPOGEN [Concomitant]
     Dosage: 480 MCG/DAY
     Route: 058
  11. DIFLUCAN [Concomitant]
     Dosage: 400 MG EVERY 24 HOURS
     Route: 042
  12. LASIX [Concomitant]
     Dosage: 40 MG/DAY
     Route: 042
  13. DILAUDID [Concomitant]
     Dosage: 0.5 MG EVERY 6 HOURS
     Route: 042
  14. ZYVOX [Concomitant]
     Dosage: 300 MG EVERY 12 HOURS
  15. ATIVAN [Concomitant]
     Dosage: 1 MG EVERY 6 HOURS, PRN
     Route: 042
  16. POTASSIUM [Concomitant]
     Dosage: 40 MEQ DAILY
     Route: 042
  17. TPN ELECTROLYTES IN PLASTIC CONTAINER [Concomitant]
     Dosage: 50 ML/HOUR DAILY
  18. MITOXANTRONE [Concomitant]
  19. VP-16 [Concomitant]

REACTIONS (38)
  - ABDOMINAL DISTENSION [None]
  - ALANINE AMINOTRANSFERASE DECREASED [None]
  - BLADDER CATHETERISATION [None]
  - BLOOD ALBUMIN DECREASED [None]
  - BLOOD BILIRUBIN INCREASED [None]
  - BLOOD CALCIUM DECREASED [None]
  - BLOOD MAGNESIUM DECREASED [None]
  - BLOOD PRESSURE INCREASED [None]
  - BLOOD UREA INCREASED [None]
  - CONTUSION [None]
  - CORD BLOOD TRANSPLANT THERAPY [None]
  - DEPRESSION [None]
  - DIARRHOEA [None]
  - DYSPNOEA [None]
  - ESCHERICHIA SEPSIS [None]
  - FATIGUE [None]
  - FEBRILE NEUTROPENIA [None]
  - GENITAL INFECTION FEMALE [None]
  - HEART RATE INCREASED [None]
  - MALAISE [None]
  - MUSCULAR WEAKNESS [None]
  - NAIL DISCOLOURATION [None]
  - NAUSEA [None]
  - NERVOUSNESS [None]
  - NEUTROPHIL COUNT DECREASED [None]
  - OEDEMA [None]
  - OXYGEN SATURATION DECREASED [None]
  - PALLOR [None]
  - PANCYTOPENIA [None]
  - PROTEIN TOTAL DECREASED [None]
  - PYREXIA [None]
  - SKIN EXFOLIATION [None]
  - STAPHYLOCOCCAL INFECTION [None]
  - STOMATITIS [None]
  - TACHYCARDIA [None]
  - TACHYPNOEA [None]
  - TREMOR [None]
  - WEIGHT DECREASED [None]
